FAERS Safety Report 4299094-6 (Version None)
Quarter: 2004Q1

REPORT INFORMATION
  Report Type: 
  Country: None (occurrence: None)
  Receive Date: 20040219
  Receipt Date: 20040209
  Transmission Date: 20041129
  Serious: Yes (Life-Threatening, Hospitalization)
  Sender: FDA-Public Use
  Company Number: DE-BRISTOL-MYERS SQUIBB COMPANY-12499042

PATIENT
  Age: 73 Year
  Sex: Female

DRUGS (1)
  1. PLATINEX [Suspect]
     Indication: GASTRIC CANCER
     Route: 042
     Dates: start: 20040120, end: 20040120

REACTIONS (3)
  - BRONCHOSPASM [None]
  - HYPERTENSION [None]
  - TACHYCARDIA [None]
